FAERS Safety Report 12986953 (Version 2)
Quarter: 2016Q4

REPORT INFORMATION
  Report Type: Spontaneous
  Country: FR (occurrence: FR)
  Receive Date: 20161130
  Receipt Date: 20161215
  Transmission Date: 20170207
  Serious: Yes (Hospitalization)
  Sender: FDA-Public Use
  Company Number: FR-CELGENEUS-FRA-2016107787

PATIENT
  Age: 75 Year
  Sex: Male
  Weight: 69.9 kg

DRUGS (22)
  1. CLOPIDOGREL [Concomitant]
     Active Substance: CLOPIDOGREL BISULFATE
     Indication: CARDIOVASCULAR EVENT PROPHYLAXIS
     Dosage: 75MG
     Route: 048
     Dates: start: 201509
  2. ZOLEDRONIC ACID [Concomitant]
     Active Substance: ZOLEDRONIC ACID
     Indication: PROPHYLAXIS
     Route: 041
     Dates: start: 20160928
  3. TRAMADOL. [Concomitant]
     Active Substance: TRAMADOL
     Dosage: 50MG
     Route: 048
     Dates: start: 20161005
  4. VALACICLOVIR [Concomitant]
     Active Substance: VALACYCLOVIR HYDROCHLORIDE
     Indication: INFECTION PROPHYLAXIS
     Dosage: 500MG
     Route: 048
     Dates: start: 20161005
  5. DARATUMUMAB [Suspect]
     Active Substance: DARATUMUMAB
     Indication: PLASMA CELL MYELOMA
     Dosage: 1168 MG
     Route: 041
     Dates: start: 20160927
  6. ATORVASTATIN [Concomitant]
     Active Substance: ATORVASTATIN
     Indication: HYPERCHOLESTEROLAEMIA
     Dosage: 10MG
     Route: 048
  7. AMPHOTERICINE B [Concomitant]
     Active Substance: AMPHOTERICIN B
     Indication: MUCOSAL INFLAMMATION
     Dosage: 30ML
     Route: 048
     Dates: start: 20161013
  8. REVLIMID [Suspect]
     Active Substance: LENALIDOMIDE
     Indication: PLASMA CELL MYELOMA
     Route: 048
     Dates: start: 20160927
  9. SITAGLIPTIN PHOSPHATE MONOHYDRATE [Concomitant]
     Active Substance: SITAGLIPTIN PHOSPHATE
     Indication: TYPE 2 DIABETES MELLITUS
     Dosage: 100MG
     Route: 048
     Dates: start: 2013
  10. LOPERAMIDE [Concomitant]
     Active Substance: LOPERAMIDE
     Indication: GASTROINTESTINAL HYPERMOTILITY
     Dosage: 15MG
     Route: 048
  11. ZOPICLONE [Concomitant]
     Active Substance: ZOPICLONE
     Indication: INSOMNIA
     Dosage: 3.75MG
     Route: 048
     Dates: start: 20161004
  12. VENLAFAXINE [Concomitant]
     Active Substance: VENLAFAXINE HYDROCHLORIDE
     Indication: DEPRESSION
     Route: 048
     Dates: start: 20161020
  13. BICARBONATE [Concomitant]
     Active Substance: BICARBONATE ION
     Indication: MUCOSAL INFLAMMATION
     Dosage: 750ML
     Route: 048
     Dates: start: 20161013
  14. TRAMADOL. [Concomitant]
     Active Substance: TRAMADOL
     Indication: ARTHRALGIA
     Dosage: 50MG
     Route: 048
     Dates: start: 20161004
  15. RAMIPRIL. [Concomitant]
     Active Substance: RAMIPRIL
     Indication: RENAL FAILURE
     Dosage: 2.5MG
     Route: 048
     Dates: start: 201309
  16. LAMALINE [Concomitant]
     Active Substance: ACETAMINOPHEN\CAFFEINE\OPIUM
     Indication: ARTHRALGIA
     Route: 048
     Dates: start: 20160906
  17. FENOFIBRATE. [Concomitant]
     Active Substance: FENOFIBRATE
     Indication: TYPE 2 DIABETES MELLITUS
     Dosage: 145MG
     Route: 048
  18. FENOFIBRATE. [Concomitant]
     Active Substance: FENOFIBRATE
     Indication: HYPERGLYCAEMIA
     Dosage: 145MG
     Route: 048
     Dates: start: 20161010
  19. FERRIC OXIDE, SACCHARATED [Concomitant]
     Indication: BLOOD IRON DECREASED
     Route: 041
     Dates: start: 20161004
  20. DEXAMETHASONE IV [Suspect]
     Active Substance: DEXAMETHASONE
     Indication: PLASMA CELL MYELOMA
     Dosage: 20MG
     Route: 041
     Dates: start: 20160927
  21. LANSOPRAZOLE. [Concomitant]
     Active Substance: LANSOPRAZOLE
     Indication: GASTROOESOPHAGEAL REFLUX DISEASE
     Dosage: 15MG
     Route: 048
  22. EPOETIN ALFA [Concomitant]
     Active Substance: ERYTHROPOIETIN
     Indication: ANAEMIA
     Route: 058
     Dates: start: 20161011

REACTIONS (3)
  - Pneumonia [Recovered/Resolved]
  - Pneumonia [Not Recovered/Not Resolved]
  - Dyspnoea [Recovered/Resolved]

NARRATIVE: CASE EVENT DATE: 20161015
